FAERS Safety Report 23184792 (Version 1)
Quarter: 2023Q4

REPORT INFORMATION
  Report Type: Other
  Country: CN (occurrence: None)
  Receive Date: 20231115
  Receipt Date: 20231115
  Transmission Date: 20240110
  Serious: Yes (Other)
  Sender: FDA-Public Use
  Company Number: CN-ROCHE-3454567

PATIENT
  Age: 72 Year
  Sex: Female

DRUGS (4)
  1. BEVACIZUMAB [Suspect]
     Active Substance: BEVACIZUMAB
     Indication: Non-small cell lung cancer
     Route: 065
     Dates: start: 202105
  2. ICOTINIB [Suspect]
     Active Substance: ICOTINIB
     Indication: Non-small cell lung cancer
     Route: 065
     Dates: start: 202105
  3. FURMONERTINIB [Concomitant]
  4. AUMOLERTINIB [Concomitant]
     Active Substance: AUMOLERTINIB

REACTIONS (3)
  - Metastases to meninges [Recovering/Resolving]
  - Metastases to central nervous system [Recovering/Resolving]
  - Disease progression [Unknown]
